FAERS Safety Report 7620851-X (Version None)
Quarter: 2011Q3

REPORT INFORMATION
  Report Type: 
  Country: None (occurrence: None)
  Receive Date: 20110719
  Receipt Date: 20110711
  Transmission Date: 20111222
  Serious: Yes (Other)
  Sender: FDA-Public Use
  Company Number: CHPA2011US09096

PATIENT
  Age: 79 Year
  Sex: Female
  Weight: 59.41 kg

DRUGS (1)
  1. BENEFIBER W/ WHEAT DEXTRIN [Suspect]
     Indication: BOWEL MOVEMENT IRREGULARITY
     Dosage: 10 TSP, QD
     Route: 048
     Dates: start: 20110301, end: 20110709

REACTIONS (4)
  - OFF LABEL USE [None]
  - OVERDOSE [None]
  - RASH PAPULAR [None]
  - PRURITUS GENERALISED [None]
